FAERS Safety Report 21901557 (Version 2)
Quarter: 2023Q1

REPORT INFORMATION
  Report Type: Spontaneous
  Country: JP (occurrence: JP)
  Receive Date: 20230123
  Receipt Date: 20230207
  Transmission Date: 20230417
  Serious: Yes (Death)
  Sender: FDA-Public Use
  Company Number: JP-AMGEN-JPNSP2023009855

PATIENT
  Age: 93 Year
  Sex: Male

DRUGS (1)
  1. EVENITY [Suspect]
     Active Substance: ROMOSOZUMAB-AQQG
     Indication: Osteoporosis
     Dosage: 210 MILLIGRAM (TWICE MONTHLY)
     Route: 058
     Dates: start: 20211201, end: 20221201

REACTIONS (2)
  - Marasmus [Fatal]
  - Off label use [Unknown]

NARRATIVE: CASE EVENT DATE: 20211201
